FAERS Safety Report 6016048-X (Version None)
Quarter: 2008Q4

REPORT INFORMATION
  Report Type: 
  Country: None (occurrence: None)
  Receive Date: 20081222
  Receipt Date: 20081211
  Transmission Date: 20090506
  Serious: Yes (Life-Threatening, Other)
  Sender: FDA-Public Use
  Company Number: US-MERCK-0812USA00883

PATIENT
  Sex: Female
  Weight: 25 kg

DRUGS (2)
  1. SINGULAIR [Suspect]
     Indication: MULTIPLE ALLERGIES
     Route: 048
     Dates: start: 20011215, end: 20080401
  2. SINGULAIR [Suspect]
     Indication: ASTHMA
     Route: 048
     Dates: start: 20011215, end: 20080401

REACTIONS (17)
  - ABDOMINAL PAIN UPPER [None]
  - ABNORMAL BEHAVIOUR [None]
  - ABNORMAL DREAMS [None]
  - AGGRESSION [None]
  - AMNESIA [None]
  - DEPRESSION [None]
  - DIZZINESS [None]
  - EMOTIONAL DISORDER [None]
  - HEADACHE [None]
  - INSOMNIA [None]
  - MOOD SWINGS [None]
  - MUSCLE SPASMS [None]
  - SELF ESTEEM DECREASED [None]
  - SLEEP TALKING [None]
  - SLEEP TERROR [None]
  - SOMNAMBULISM [None]
  - SUICIDAL IDEATION [None]
